FAERS Safety Report 15248061 (Version 1)
Quarter: 2018Q3

REPORT INFORMATION
  Report Type: Spontaneous
  Country: US (occurrence: US)
  Receive Date: 20180807
  Receipt Date: 20180807
  Transmission Date: 20181010
  Serious: Yes (Other)
  Sender: FDA-Public Use
  Company Number: US-TEVA-2018-US-936963

PATIENT
  Age: 14 Year
  Sex: Female

DRUGS (1)
  1. CLONAZEPAM. [Suspect]
     Active Substance: CLONAZEPAM
     Indication: SEIZURE
     Route: 065
     Dates: start: 201711, end: 201806

REACTIONS (3)
  - Constipation [Unknown]
  - Drug effect incomplete [Unknown]
  - Urinary retention [Unknown]

NARRATIVE: CASE EVENT DATE: 201806
